FAERS Safety Report 6732949-9 (Version None)
Quarter: 2010Q2

REPORT INFORMATION
  Report Type: 
  Country: None (occurrence: None)
  Receive Date: 20100517
  Receipt Date: 20100504
  Transmission Date: 20101027
  Serious: Yes (Hospitalization, Other)
  Sender: FDA-Public Use
  Company Number: A-US2009-26955

PATIENT
  Age: 5 Year
  Sex: Male

DRUGS (1)
  1. TRACLEER [Suspect]
     Indication: PULMONARY ARTERIAL HYPERTENSION
     Dosage: 31.25 MG, BID, ORAL
     Route: 048
     Dates: start: 20080703

REACTIONS (8)
  - ASCITES [None]
  - HEPATIC CIRRHOSIS [None]
  - HEPATOMEGALY [None]
  - NODULAR REGENERATIVE HYPERPLASIA [None]
  - OFF LABEL USE [None]
  - PLATELET COUNT DECREASED [None]
  - SPLENOMEGALY [None]
  - VIRAL UPPER RESPIRATORY TRACT INFECTION [None]
